FAERS Safety Report 9092704 (Version 1)
Quarter: 2013Q1

REPORT INFORMATION
  Report Type: Spontaneous
  Country: IN (occurrence: IN)
  Receive Date: 20130201
  Receipt Date: 20130201
  Transmission Date: 20140127
  Serious: Yes (Hospitalization)
  Sender: FDA-Public Use
  Company Number: IN-GE HEALTHCARE MEDICAL DIAGNOSTICS-OMPQ-NO-1301S-0096

PATIENT
  Age: 29 Year
  Sex: Female

DRUGS (3)
  1. OMNIPAQUE [Suspect]
     Indication: PAIN
     Route: 042
     Dates: start: 20130121, end: 20130121
  2. OMNIPAQUE [Suspect]
     Indication: DIAGNOSTIC PROCEDURE
  3. NIMESULIDE [Concomitant]

REACTIONS (3)
  - Nausea [Recovered/Resolved]
  - Loss of consciousness [Recovered/Resolved]
  - Vomiting [Recovered/Resolved]
